FAERS Safety Report 10019278 (Version 3)
Quarter: 2014Q1

REPORT INFORMATION
  Report Type: Spontaneous
  Country: JP (occurrence: JP)
  Receive Date: 20140318
  Receipt Date: 20140319
  Transmission Date: 20141002
  Serious: Yes (Other)
  Sender: FDA-Public Use
  Company Number: JP-PFIZER INC-2014054266

PATIENT
  Age: 64 Year
  Sex: Female

DRUGS (5)
  1. LYRICA [Suspect]
     Indication: SPINAL COLUMN STENOSIS
     Dosage: 25 MG, 2X/DAY
     Route: 048
     Dates: start: 20140220, end: 20140224
  2. DORAL [Concomitant]
     Dosage: 30 MG, DAILY
     Route: 048
  3. ZYPREXA [Concomitant]
     Dosage: 5 MG, DAILY
     Route: 048
  4. NITRAZEPAM [Concomitant]
     Dosage: 5 MG, DAILY
     Route: 048
  5. SEROQUEL [Concomitant]
     Dosage: 400 MG, DAILY
     Route: 048

REACTIONS (2)
  - Dystonia [Recovered/Resolved]
  - Dysstasia [Recovered/Resolved]
